FAERS Safety Report 26192817 (Version 1)
Quarter: 2025Q4

REPORT INFORMATION
  Report Type: Spontaneous
  Country: CA (occurrence: CA)
  Receive Date: 20251223
  Receipt Date: 20251223
  Transmission Date: 20260117
  Serious: Yes (Other)
  Sender: PFIZER
  Company Number: CA-PFIZER INC-PV202500148988

PATIENT
  Age: 27 Year
  Sex: Male

DRUGS (1)
  1. IXIFI [Suspect]
     Active Substance: INFLIXIMAB-QBTX
     Dosage: UNK
     Dates: start: 20251206

REACTIONS (1)
  - Haematochezia [Unknown]

NARRATIVE: CASE EVENT DATE: 20250101
